FAERS Safety Report 8800136 (Version 2)
Quarter: 2015Q2

REPORT INFORMATION
  Report Type: Report from Study
  Country: US (occurrence: US)
  Receive Date: 20120921
  Receipt Date: 20150622
  Transmission Date: 20150821
  Serious: Yes (Death)
  Sender: FDA-Public Use
  Company Number: US-ROCHE-1124307

PATIENT
  Sex: Female

DRUGS (8)
  1. DECADRON [Concomitant]
     Active Substance: DEXAMETHASONE
     Route: 042
  2. ANZEMET [Concomitant]
     Active Substance: DOLASETRON MESYLATE
     Route: 042
  3. PROCRIT [Concomitant]
     Active Substance: ERYTHROPOIETIN
  4. AVASTIN [Suspect]
     Active Substance: BEVACIZUMAB
     Indication: BRAIN NEOPLASM MALIGNANT
     Route: 042
     Dates: start: 20041208
  5. TEMODAR [Suspect]
     Active Substance: TEMOZOLOMIDE
     Indication: PRODUCT USED FOR UNKNOWN INDICATION
     Route: 065
  6. CAMPTOSAR [Concomitant]
     Active Substance: IRINOTECAN HYDROCHLORIDE
     Route: 042
  7. NEUPOGEN [Concomitant]
     Active Substance: FILGRASTIM
     Route: 065
  8. IMODIUM [Concomitant]
     Active Substance: LOPERAMIDE HYDROCHLORIDE

REACTIONS (4)
  - Off label use [Unknown]
  - Toxicity to various agents [Unknown]
  - Bone marrow failure [Recovered/Resolved]
  - Death [Fatal]
